FAERS Safety Report 5045793-8 (Version None)
Quarter: 2006Q2

REPORT INFORMATION
  Report Type: 
  Country: None (occurrence: None)
  Receive Date: 20060601
  Receipt Date: 20060404
  Transmission Date: 20061013
  Serious: No
  Sender: FDA-Public Use
  Company Number: 2006-BP-16855BP

PATIENT
  Age: 80 Year
  Sex: Male

DRUGS (10)
  1. SPIRIVA [Suspect]
     Indication: CHRONIC OBSTRUCTIVE PULMONARY DISEASE
     Dosage: 18 MCG (18 MCG, 1 IN 1 D), IH
     Route: 055
     Dates: start: 20041201
  2. SEREVENT [Concomitant]
  3. COMBIVENT (COMBIVENT /01261001/) [Concomitant]
  4. VASOTEC [Concomitant]
  5. FUROSOMIDE [Concomitant]
  6. POTASSIUM [Concomitant]
  7. FLONASE [Concomitant]
  8. CENTRUM MULTIVITAMIN [Concomitant]
  9. ASPIRIN [Concomitant]
  10. TYLENOL PM (TYLENOL PM /01088101/) [Concomitant]

REACTIONS (3)
  - AGEUSIA [None]
  - DRUG INEFFECTIVE [None]
  - DYSPNOEA EXERTIONAL [None]
